FAERS Safety Report 14639601 (Version 2)
Quarter: 2018Q2

REPORT INFORMATION
  Report Type: Spontaneous
  Country: US (occurrence: US)
  Receive Date: 20180315
  Receipt Date: 20180404
  Transmission Date: 20180711
  Serious: Yes (Hospitalization)
  Sender: FDA-Public Use
  Company Number: US-BAUSCH-BL-2018-005878

PATIENT
  Sex: Female

DRUGS (2)
  1. FLUOROURACIL. [Suspect]
     Active Substance: FLUOROURACIL
     Indication: THERAPEUTIC SKIN CARE TOPICAL
     Route: 061
     Dates: start: 20180206, end: 20180217
  2. ALENDRONATE SODIUM. [Suspect]
     Active Substance: ALENDRONATE SODIUM
     Indication: BONE LOSS
     Route: 048

REACTIONS (7)
  - Erythema [Unknown]
  - Pruritus generalised [Not Recovered/Not Resolved]
  - Secretion discharge [Recovered/Resolved]
  - Sleep disorder [Not Recovered/Not Resolved]
  - Peripheral swelling [Recovered/Resolved]
  - Swelling face [Unknown]
  - Hypersensitivity [Unknown]

NARRATIVE: CASE EVENT DATE: 2018
